FAERS Safety Report 6542808-2 (Version None)
Quarter: 2010Q1

REPORT INFORMATION
  Report Type: 
  Country: None (occurrence: None)
  Receive Date: 20100114
  Receipt Date: 20100104
  Transmission Date: 20100710
  Serious: Yes (Hospitalization, Disabling)
  Sender: FDA-Public Use
  Company Number: 004196

PATIENT
  Age: 21 Year
  Sex: Male

DRUGS (3)
  1. KEPPRA [Suspect]
     Indication: CONVULSION
     Dosage: (4000 MG, UPTITRATED DOSAGE REGIMEN) ; (2000 MG, 2 WEEKS PERIOD AT HOSPITAL)
  2. LACOSAMIDE [Suspect]
     Dosage: (50 MG, BID) ; (200 MG BID)
  3. OXCARBAZEPINE [Concomitant]

REACTIONS (3)
  - DISTURBANCE IN ATTENTION [None]
  - GRAND MAL CONVULSION [None]
  - PSYCHOMOTOR HYPERACTIVITY [None]
